FAERS Safety Report 6985961-9 (Version None)
Quarter: 2010Q3

REPORT INFORMATION
  Report Type: 
  Country: None (occurrence: None)
  Receive Date: 20100915
  Receipt Date: 20100907
  Transmission Date: 20110219
  Serious: Yes (Other)
  Sender: FDA-Public Use
  Company Number: US-ABBOTT-10P-163-0668679-00

PATIENT
  Sex: Male
  Weight: 99.88 kg

DRUGS (4)
  1. HUMIRA [Suspect]
     Indication: PSORIATIC ARTHROPATHY
     Dates: start: 20100101, end: 20100814
  2. PREDNISONE [Concomitant]
     Indication: PRODUCT USED FOR UNKNOWN INDICATION
     Dosage: 15 MG DAILY
     Dates: start: 20100101, end: 20100701
  3. PREDNISONE [Concomitant]
     Dosage: 10 MILLIGRAM DAILY
     Dates: start: 20100701, end: 20100901
  4. PREDNISONE [Concomitant]
     Dosage: 12.5 MILLIGRAM DAILY
     Dates: start: 20100901

REACTIONS (7)
  - ARTHRALGIA [None]
  - BLINDNESS [None]
  - CEREBELLAR INFARCTION [None]
  - EYELID PTOSIS [None]
  - HYPERTENSION [None]
  - HYPOAESTHESIA EYE [None]
  - PARAESTHESIA [None]
